FAERS Safety Report 14660342 (Version 1)
Quarter: 2018Q1

REPORT INFORMATION
  Report Type: Spontaneous
  Country: US (occurrence: US)
  Receive Date: 20180320
  Receipt Date: 20180320
  Transmission Date: 20180509
  Serious: Yes (Hospitalization)
  Sender: FDA-Public Use
  Company Number: US-JNJFOC-20180322334

PATIENT
  Age: 57 Year
  Sex: Male

DRUGS (3)
  1. HUMALOG [Concomitant]
     Active Substance: INSULIN LISPRO
     Dosage: 100 UNITS/ML, 15 UNITS THRICE A DAY (TID) PER SCALE
     Route: 058
  2. LANTUS [Concomitant]
     Active Substance: INSULIN GLARGINE
     Dosage: 100 UNITS/ML, 55 UNITS EVERY BEDTIME
     Route: 058
  3. INVOKANA [Suspect]
     Active Substance: CANAGLIFLOZIN
     Indication: TYPE 2 DIABETES MELLITUS
     Route: 048
     Dates: start: 20140826

REACTIONS (3)
  - Toe amputation [Unknown]
  - Gangrene [Unknown]
  - Localised infection [Unknown]

NARRATIVE: CASE EVENT DATE: 20150818
